FAERS Safety Report 5851742-2 (Version None)
Quarter: 2008Q3

REPORT INFORMATION
  Report Type: 
  Country: None (occurrence: None)
  Receive Date: 20080820
  Receipt Date: 20080814
  Transmission Date: 20090109
  Serious: Yes (Other)
  Sender: FDA-Public Use
  Company Number: PHEH2008US07228

PATIENT
  Age: 70 Year
  Sex: Male
  Weight: 72.562 kg

DRUGS (1)
  1. RECLAST [Suspect]
     Indication: MULTIPLE FRACTURES
     Dosage: 5 MG, EVERY YEAR
     Dates: start: 20080601

REACTIONS (3)
  - BACK PAIN [None]
  - MOBILITY DECREASED [None]
  - THROMBOSIS [None]
